FAERS Safety Report 5220996-8 (Version None)
Quarter: 2007Q1

REPORT INFORMATION
  Report Type: 
  Country: None (occurrence: None)
  Receive Date: 20070126
  Receipt Date: 20070117
  Transmission Date: 20070707
  Serious: Yes (Other)
  Sender: FDA-Public Use
  Company Number: US-ROCHE-477196

PATIENT
  Sex: Male

DRUGS (1)
  1. XELODA [Suspect]
     Indication: COLON CANCER
     Dosage: THE PATIENT COMPLETED 5 CYCLES OF XELODA AND IS CURRENTLY IN HIS 6TH.
     Route: 048

REACTIONS (1)
  - OSTEONECROSIS [None]
